FAERS Safety Report 5607274-X (Version None)
Quarter: 2008Q1

REPORT INFORMATION
  Report Type: 
  Country: None (occurrence: None)
  Receive Date: 20080130
  Receipt Date: 20080128
  Transmission Date: 20080703
  Serious: Yes (Hospitalization)
  Sender: FDA-Public Use
  Company Number: JP-BRISTOL-MYERS SQUIBB COMPANY-14054886

PATIENT
  Age: 60 Year
  Sex: Male

DRUGS (8)
  1. FUNGIZONE [Suspect]
     Indication: MENINGITIS CRYPTOCOCCAL
     Route: 029
     Dates: start: 20080118, end: 20080123
  2. GANCICLOVIR [Suspect]
  3. ZANTAC [Concomitant]
  4. CALBLOCK [Concomitant]
     Route: 048
  5. LIPITOR [Concomitant]
     Route: 048
  6. LASIX [Concomitant]
  7. SODIUM CHLORIDE INJ [Concomitant]
  8. PREDONINE [Concomitant]

REACTIONS (1)
  - HYPOTHERMIA [None]
